FAERS Safety Report 17109121 (Version 2)
Quarter: 2020Q2

REPORT INFORMATION
  Report Type: Spontaneous
  Country: GB (occurrence: GB)
  Receive Date: 20191204
  Receipt Date: 20200626
  Transmission Date: 20200713
  Serious: Yes (Hospitalization, Other)
  Sender: FDA-Public Use
  Company Number: GB-AUROBINDO-AUR-APL-2019-076047

PATIENT
  Age: 53 Year
  Sex: Male

DRUGS (6)
  1. ESOMEPRAZOLE. [Suspect]
     Active Substance: ESOMEPRAZOLE MAGNESIUM
     Indication: PROPHYLAXIS
     Dosage: 20 MILLIGRAM
     Route: 048
  2. LOSARTAN. [Suspect]
     Active Substance: LOSARTAN
     Indication: HYPERTENSION
     Dosage: 100 MILLIGRAM
     Route: 048
  3. VALPROIC ACID. [Suspect]
     Active Substance: VALPROIC ACID
     Indication: MOOD ALTERED
     Dosage: 500 MILLIGRAM
     Route: 048
  4. ACETYLSALICYLIC ACID [Concomitant]
     Active Substance: ASPIRIN
     Indication: PRODUCT USED FOR UNKNOWN INDICATION
     Dosage: 75 MILLIGRAM, DAILY
     Route: 065
  5. OLANZAPINE. [Concomitant]
     Active Substance: OLANZAPINE
     Indication: PRODUCT USED FOR UNKNOWN INDICATION
     Dosage: 15 MILLIGRAM, DAILY, AT NIGHT
     Route: 065
  6. VITAMIN B [Concomitant]
     Active Substance: VITAMIN B
     Indication: PRODUCT USED FOR UNKNOWN INDICATION
     Dosage: UNK
     Route: 065

REACTIONS (2)
  - Hyponatraemia [Not Recovered/Not Resolved]
  - Seizure [Unknown]

NARRATIVE: CASE EVENT DATE: 20191110
